FAERS Safety Report 5995776-6 (Version None)
Quarter: 2008Q4

REPORT INFORMATION
  Report Type: 
  Country: None (occurrence: None)
  Receive Date: 20081212
  Receipt Date: 20081003
  Transmission Date: 20090506
  Serious: No
  Sender: FDA-Public Use
  Company Number: US-ABBOTT-08P-163-0479572-00

PATIENT
  Sex: Female
  Weight: 136.2 kg

DRUGS (9)
  1. HUMIRA [Suspect]
     Indication: RHEUMATOID ARTHRITIS
     Route: 058
     Dates: start: 20080501
  2. BACTRIM [Concomitant]
     Indication: ACNE
     Dosage: 800/160MG BID
     Route: 048
     Dates: start: 20060101
  3. TRAMADOL HYDROCHLORIDE [Concomitant]
     Indication: PAIN
     Route: 048
     Dates: start: 20070101
  4. TRAZODONE HCL [Concomitant]
     Indication: INSOMNIA
     Route: 048
     Dates: start: 20080201
  5. FERROUS SULFATE TAB [Concomitant]
     Indication: ANAEMIA
     Route: 048
     Dates: start: 20071126
  6. CITALOPRAM HYDROBROMIDE [Concomitant]
     Indication: DEPRESSION
     Route: 048
     Dates: start: 20070501
  7. NABUMETONE [Concomitant]
     Indication: PAIN
     Route: 048
     Dates: start: 20080601
  8. RANITIDINE [Concomitant]
     Indication: GASTROOESOPHAGEAL REFLUX DISEASE
     Route: 048
     Dates: start: 20080601
  9. CARISOPRODOL [Concomitant]
     Indication: PAIN
     Route: 048
     Dates: start: 20080601

REACTIONS (2)
  - FEELING ABNORMAL [None]
  - RASH [None]
